FAERS Safety Report 10996235 (Version 3)
Quarter: 2017Q1

REPORT INFORMATION
  Report Type: Spontaneous
  Country: FR (occurrence: FR)
  Receive Date: 20150408
  Receipt Date: 20170203
  Transmission Date: 20170428
  Serious: Yes (Hospitalization, Other)
  Sender: FDA-Public Use
  Company Number: FR-AMGEN-FRASP2015032593

PATIENT
  Age: 76 Year
  Sex: Female

DRUGS (9)
  1. VESICARE [Suspect]
     Active Substance: SOLIFENACIN SUCCINATE
     Indication: URINARY INCONTINENCE
     Dosage: 5 MUG, QD
     Route: 048
     Dates: end: 20150102
  2. KARDEGIC [Concomitant]
     Active Substance: ASPIRIN LYSINE
     Dosage: 75 MG, UNK
  3. FLECAINE [Concomitant]
     Active Substance: FLECAINIDE
     Dosage: 100 MG, UNK
  4. CORTANCYL [Concomitant]
     Active Substance: PREDNISONE
     Indication: CYSTITIS
     Dosage: 40 MG, UNK
  5. PROLIA [Suspect]
     Active Substance: DENOSUMAB
     Indication: OSTEOPOROSIS
     Dosage: 60 MG, QD
     Route: 058
     Dates: start: 201411, end: 201411
  6. CALCIDIA [Concomitant]
     Active Substance: CALCIUM POLYCARBOPHIL
  7. CARDENSIEL [Concomitant]
     Active Substance: BISOPROLOL FUMARATE
     Dosage: 1.25 MG, UNK
  8. SODIUM BICARBONATE. [Concomitant]
     Active Substance: SODIUM BICARBONATE
     Dosage: 1 G, BID (IN THE MORNING AND IN THE EVENING)
  9. UVEDOSE [Concomitant]
     Active Substance: CHOLECALCIFEROL
     Dosage: UNK

REACTIONS (6)
  - Tubulointerstitial nephritis [Recovered/Resolved]
  - Inflammation [Unknown]
  - Acute kidney injury [Recovered/Resolved with Sequelae]
  - Proteinuria [Recovered/Resolved]
  - Asthenia [Recovered/Resolved]
  - Urinary sediment abnormal [Recovered/Resolved]

NARRATIVE: CASE EVENT DATE: 20141230
